FAERS Safety Report 7225820 (Version 3)
Quarter: 2012Q4

REPORT INFORMATION
  Report Type: Report from Study
  Country: US (occurrence: US)
  Receive Date: 20091222
  Receipt Date: 20121130
  Transmission Date: 20130627
  Serious: Yes (Death, Hospitalization, Other)
  Sender: FDA-Public Use
  Company Number: US-ROCHE-675213

PATIENT
  Age: 51 Year
  Sex: Female
  Weight: 103.4 kg

DRUGS (3)
  1. CAPECITABINE [Suspect]
     Indication: BREAST CANCER
     Dosage: ROUTE: MOUTH. STRENGTH: 500.
     Route: 048
  2. CAPECITABINE [Suspect]
     Route: 048
     Dates: start: 20091005, end: 20091015
  3. CAPECITABINE [Suspect]
     Route: 048

REACTIONS (10)
  - Neoplasm malignant [Fatal]
  - Diverticulitis [Unknown]
  - Fall [Unknown]
  - Vasogenic cerebral oedema [Unknown]
  - Pulmonary embolism [Unknown]
  - Abdominal pain upper [Unknown]
  - Decreased appetite [Unknown]
  - Nausea [Unknown]
  - Dysarthria [Recovering/Resolving]
  - Aphasia [Unknown]
